FAERS Safety Report 12741167 (Version 1)
Quarter: 2016Q3

REPORT INFORMATION
  Report Type: Report from Study
  Country: US (occurrence: US)
  Receive Date: 20160914
  Receipt Date: 20160914
  Transmission Date: 20161109
  Serious: Yes (Other)
  Sender: FDA-Public Use
  Company Number: US-AMGEN-USASL2016121539

PATIENT
  Age: 20 Year
  Sex: Female

DRUGS (1)
  1. ENBREL [Suspect]
     Active Substance: ETANERCEPT
     Indication: ANKYLOSING SPONDYLITIS
     Dosage: UNK
     Route: 065
     Dates: start: 20110915

REACTIONS (7)
  - Weight increased [Unknown]
  - Bipolar disorder [Unknown]
  - Hepatic steatosis [Unknown]
  - Cholecystectomy [Unknown]
  - Arthropathy [Unknown]
  - Borderline personality disorder [Unknown]
  - Back disorder [Unknown]

NARRATIVE: CASE EVENT DATE: 2016
